FAERS Safety Report 11339955 (Version 2)
Quarter: 2015Q3

REPORT INFORMATION
  Report Type: Spontaneous
  Country: CA (occurrence: CA)
  Receive Date: 20150805
  Receipt Date: 20150813
  Transmission Date: 20151125
  Serious: Yes (Other)
  Sender: FDA-Public Use
  Company Number: CA-PFIZER INC-2015254904

PATIENT
  Sex: Male

DRUGS (8)
  1. SAQUINAVIR [Suspect]
     Active Substance: SAQUINAVIR
     Dosage: UNK
  2. HYDROXYUREA. [Suspect]
     Active Substance: HYDROXYUREA
     Dosage: UNK
  3. VIRAMUNE [Suspect]
     Active Substance: NEVIRAPINE
     Dosage: UNK
  4. VIDEX [Suspect]
     Active Substance: DIDANOSINE
     Dosage: UNK
  5. NELFINAVIR MESILATE [Suspect]
     Active Substance: NELFINAVIR MESYLATE
     Dosage: UNK
  6. RESCRIPTOR [Suspect]
     Active Substance: DELAVIRDINE MESYLATE
     Dosage: UNK
  7. 3TC [Suspect]
     Active Substance: LAMIVUDINE
     Dosage: UNK
  8. ZERIT [Suspect]
     Active Substance: STAVUDINE
     Dosage: UNK

REACTIONS (3)
  - Weight decreased [Recovered/Resolved]
  - Fatigue [Recovered/Resolved]
  - Lactic acidosis [Recovered/Resolved]
